FAERS Safety Report 8214063-9 (Version None)
Quarter: 2012Q1

REPORT INFORMATION
  Report Type: 
  Country: None (occurrence: None)
  Receive Date: 20120314
  Receipt Date: 20120314
  Transmission Date: 20120608
  Serious: Yes (Hospitalization)
  Sender: FDA-Public Use
  Company Number: None

PATIENT
  Age: 43 Year
  Sex: Female
  Weight: 78 kg

DRUGS (16)
  1. ESCITALOPRAM [Suspect]
     Indication: DEPRESSION
     Dosage: PO CHRONIC
     Route: 048
  2. M.V.I. [Concomitant]
  3. PROMETHAZINE [Concomitant]
  4. DROPERIDOL [Suspect]
     Indication: PREOPERATIVE CARE
     Dosage: 0.625 ONCE IV RECENT
     Route: 042
  5. APREPITANT [Concomitant]
  6. CLONDOMYCIN [Concomitant]
  7. DEXAMETHASONE [Concomitant]
  8. MIDAZOLAM [Concomitant]
  9. SCOPALAMINE [Concomitant]
  10. MAGNESIUM SULFATE [Concomitant]
  11. LEXAPRO [Concomitant]
  12. ONDANSETRON [Concomitant]
  13. LR [Concomitant]
  14. ONDANSETRON [Suspect]
     Indication: PREOPERATIVE CARE
     Dosage: 4 MG/ ONCE IV RECENT
     Route: 042
  15. HYDROMORPHONE HCL [Concomitant]
  16. ALPRAZOLAM [Concomitant]

REACTIONS (7)
  - POST PROCEDURAL COMPLICATION [None]
  - ELECTROCARDIOGRAM QT PROLONGED [None]
  - ELECTROCARDIOGRAM T WAVE INVERSION [None]
  - ARRHYTHMIA [None]
  - BUNDLE BRANCH BLOCK RIGHT [None]
  - ELECTROLYTE IMBALANCE [None]
  - CARDIOMYOPATHY [None]
